FAERS Safety Report 5148998-0 (Version None)
Quarter: 2006Q4

REPORT INFORMATION
  Report Type: 
  Country: None (occurrence: None)
  Receive Date: 20061113
  Receipt Date: 20061030
  Transmission Date: 20070319
  Serious: Yes (Other)
  Sender: FDA-Public Use
  Company Number: 2006GB01941

PATIENT
  Age: 68 Year
  Sex: Female

DRUGS (5)
  1. QUETIAPINE FUMARATE [Suspect]
     Route: 048
     Dates: start: 20060628, end: 20060805
  2. INSULIN GLARGINE [Concomitant]
     Indication: DIABETES MELLITUS
     Route: 058
     Dates: start: 20060705
  3. LEVOTHYROXINE SODIUM [Concomitant]
     Indication: HYPOTHYROIDISM
     Route: 048
  4. METFORMIN [Concomitant]
     Indication: DIABETES MELLITUS
     Route: 048
     Dates: start: 20060627
  5. VALPROIC ACID [Concomitant]
     Indication: BIPOLAR I DISORDER
     Route: 048

REACTIONS (1)
  - BLOOD SODIUM DECREASED [None]
